FAERS Safety Report 8281954-2 (Version None)
Quarter: 2012Q2

REPORT INFORMATION
  Report Type: 
  Country: None (occurrence: None)
  Receive Date: 20120413
  Receipt Date: 20110912
  Transmission Date: 20120825
  Serious: No
  Sender: FDA-Public Use
  Company Number: US-PFIZER INC-2011216642

PATIENT
  Sex: Male

DRUGS (1)
  1. PENICILLIN G PROCAINE AND PENICILLIN G BENZATHINE [Suspect]

REACTIONS (1)
  - HYPERSENSITIVITY [None]
